FAERS Safety Report 9145528 (Version 1)
Quarter: 2013Q1

REPORT INFORMATION
  Report Type: Spontaneous
  Country: US (occurrence: None)
  Receive Date: 20130227
  Receipt Date: 20130227
  Transmission Date: 20140127
  Serious: Yes (Hospitalization)
  Sender: FDA-Public Use
  Company Number: None

PATIENT
  Age: 83 Year
  Sex: Male

DRUGS (1)
  1. WARFARIN [Suspect]
     Indication: ATRIAL FIBRILLATION
     Route: 048
     Dates: start: 20111013, end: 20121227

REACTIONS (5)
  - Haemoptysis [None]
  - International normalised ratio increased [None]
  - Hypophagia [None]
  - Lung infection [None]
  - Dyspnoea [None]
